FAERS Safety Report 6056541-7 (Version None)
Quarter: 2009Q1

REPORT INFORMATION
  Report Type: 
  Country: None (occurrence: None)
  Receive Date: 20090126
  Receipt Date: 20090126
  Transmission Date: 20090719
  Serious: Yes (Hospitalization, Other)
  Sender: FDA-Public Use
  Company Number: None

PATIENT
  Age: 99 Year
  Sex: Male

DRUGS (1)
  1. REMERON [Suspect]
     Indication: DECREASED APPETITE
     Dosage: 15MG 8:AM 5-6 DAYS TABLET-PO
     Route: 048
     Dates: start: 20090109, end: 20090114

REACTIONS (1)
  - HALLUCINATION [None]
